FAERS Safety Report 25607735 (Version 2)
Quarter: 2025Q3

REPORT INFORMATION
  Report Type: Report from Study
  Country: KR (occurrence: KR)
  Receive Date: 20250725
  Receipt Date: 20250807
  Transmission Date: 20251020
  Serious: Yes (Other)
  Sender: GUERBET
  Company Number: KR-GUERBET / KOREA-KR-20250037

PATIENT
  Age: 69 Year
  Sex: Male

DRUGS (3)
  1. LIPIODOL [Suspect]
     Active Substance: ETHIODIZED OIL
     Indication: Transcatheter arterial chemoembolisation
     Dosage: EMULSION OF LIPIODOL AND CISPLATIN IN 1:1 RATIO
     Route: 013
  2. CISPLATIN [Suspect]
     Active Substance: CISPLATIN
     Indication: Transcatheter arterial chemoembolisation
     Route: 013
  3. GELFOAM [Suspect]
     Active Substance: DEVICE\GELATIN
     Indication: Transcatheter arterial chemoembolisation
     Route: 013

REACTIONS (1)
  - Liver abscess [Unknown]
